FAERS Safety Report 6251684-7 (Version None)
Quarter: 2009Q2

REPORT INFORMATION
  Report Type: 
  Country: None (occurrence: None)
  Receive Date: 20090630
  Receipt Date: 20090623
  Transmission Date: 20091009
  Serious: Yes (Other)
  Sender: FDA-Public Use
  Company Number: US-AVENTIS-200915509US

PATIENT
  Sex: Female

DRUGS (5)
  1. LANTUS [Suspect]
     Route: 058
     Dates: start: 20040101
  2. OPTICLIK (INSULIN INJECTION PEN) [Suspect]
  3. STARLIX [Concomitant]
     Dosage: DOSE: UNK
  4. CARDIOVASCULAR SYSTEM DRUGS [Concomitant]
     Dosage: DOSE: UNK
  5. CHOLESTEROL- AND TRIGLYCERIDE REDUCERS [Concomitant]
     Dosage: DOSE: UNK

REACTIONS (5)
  - COLON CANCER [None]
  - GOUT [None]
  - NEOPLASM [None]
  - PAIN IN EXTREMITY [None]
  - THROMBOSIS [None]
